FAERS Safety Report 7263139-1 (Version None)
Quarter: 2011Q1

REPORT INFORMATION
  Report Type: 
  Country: None (occurrence: None)
  Receive Date: 20110130
  Receipt Date: 20101011
  Transmission Date: 20110831
  Serious: No
  Sender: FDA-Public Use
  Company Number: US-ABBOTT-10P-163-0677657-00

PATIENT
  Age: 50 Year
  Sex: Female

DRUGS (7)
  1. CELEBREX [Concomitant]
     Indication: PRODUCT USED FOR UNKNOWN INDICATION
  2. ASPIRIN [Concomitant]
     Indication: PRODUCT USED FOR UNKNOWN INDICATION
  3. TOPEROL [Concomitant]
     Indication: HYPERTENSION
  4. BIRTH CONTROL PILLS [Concomitant]
     Indication: PRODUCT USED FOR UNKNOWN INDICATION
  5. HUMIRA [Suspect]
     Dates: start: 20101009
  6. CHLORTHALIDONE [Concomitant]
     Indication: HYPERTENSION
  7. HUMIRA [Suspect]
     Indication: PSORIATIC ARTHROPATHY
     Dates: start: 20100401

REACTIONS (3)
  - MALAISE [None]
  - MUSCULAR WEAKNESS [None]
  - PSORIATIC ARTHROPATHY [None]
